FAERS Safety Report 22170086 (Version 2)
Quarter: 2023Q2

REPORT INFORMATION
  Report Type: Spontaneous
  Country: RU (occurrence: RU)
  Receive Date: 20230404
  Receipt Date: 20230405
  Transmission Date: 20230721
  Serious: Yes (Other)
  Sender: FDA-Public Use
  Company Number: RU-002147023-NVSC2023RU075024

PATIENT
  Age: 16 Year
  Sex: Male
  Weight: 55 kg

DRUGS (6)
  1. MEKINIST [Suspect]
     Active Substance: TRAMETINIB DIMETHYL SULFOXIDE
     Indication: Arteriovenous malformation
     Dosage: 2 MG, QD
     Route: 048
     Dates: start: 20230310, end: 20230324
  2. MEKINIST [Suspect]
     Active Substance: TRAMETINIB DIMETHYL SULFOXIDE
     Dosage: 1.5 MG, QD
     Route: 065
     Dates: start: 20230320
  3. RAPAMUNE [Concomitant]
     Active Substance: SIROLIMUS
     Indication: Arteriovenous malformation
     Dosage: 1 MG, BID
     Route: 048
     Dates: start: 20220927
  4. AMLODIPINE [Concomitant]
     Active Substance: AMLODIPINE BESYLATE
     Indication: Renal hypertension
     Dosage: 10 MG, BID
     Route: 048
  5. CARVEDILOL CANON [Concomitant]
     Indication: Renal hypertension
     Dosage: 25 MG, BID
     Route: 048
  6. DOXAZOSIN [Concomitant]
     Active Substance: DOXAZOSIN MESYLATE
     Indication: Renal hypertension
     Dosage: 3 MG, QD
     Route: 048

REACTIONS (2)
  - Dermatitis acneiform [Not Recovered/Not Resolved]
  - Dermatitis acneiform [Not Recovered/Not Resolved]

NARRATIVE: CASE EVENT DATE: 20230318
